FAERS Safety Report 16799571 (Version 1)
Quarter: 2019Q3

REPORT INFORMATION
  Report Type: Report from Study
  Country: AR (occurrence: AR)
  Receive Date: 20190912
  Receipt Date: 20190912
  Transmission Date: 20191005
  Serious: Yes (Other)
  Sender: FDA-Public Use
  Company Number: PHHY2019AR211800

PATIENT
  Age: 76 Year
  Sex: Female

DRUGS (1)
  1. DIOVAN D [Suspect]
     Active Substance: HYDROCHLOROTHIAZIDE\VALSARTAN
     Indication: HYPERTENSION
     Dosage: 1 DF (HYDROCHLOROTHIAZIDE 12.5 OT, VALSARTAN 160 OT), QD
     Route: 065

REACTIONS (14)
  - Joint injury [Recovering/Resolving]
  - Bone pain [Recovering/Resolving]
  - Hepatic cyst [Unknown]
  - Fatigue [Unknown]
  - Eye injury [Unknown]
  - Nervous system disorder [Unknown]
  - Procedural complication [Unknown]
  - Fall [Recovering/Resolving]
  - Nervousness [Unknown]
  - Anxiety [Unknown]
  - Patella fracture [Recovering/Resolving]
  - Accident [Unknown]
  - Thyroid cyst [Unknown]
  - Head injury [Recovering/Resolving]

NARRATIVE: CASE EVENT DATE: 20190526
